FAERS Safety Report 8850499 (Version 1)
Quarter: 2012Q4

REPORT INFORMATION
  Report Type: 
  Country: FR (occurrence: FR)
  Receive Date: 20121019
  Receipt Date: 20121019
  Transmission Date: 20130627
  Serious: Yes (Hospitalization)
  Sender: FDA-Public Use
  Company Number: FR-ROCHE-1145848

PATIENT
  Age: 62 Year
  Sex: Male

DRUGS (5)
  1. PEGASYS [Suspect]
     Indication: HEPATITIS C
     Route: 058
     Dates: start: 20120530
  2. COPEGUS [Suspect]
     Indication: HEPATITIS C
     Route: 048
     Dates: start: 20120530
  3. COPEGUS [Suspect]
     Route: 048
  4. COPEGUS [Suspect]
     Dosage: 200 mg daily on even days and 200 mg twice daily on odd days
     Route: 048
  5. COPEGUS [Suspect]
     Route: 048

REACTIONS (2)
  - Pancytopenia [Recovering/Resolving]
  - Hyperthyroidism [Recovering/Resolving]
